FAERS Safety Report 10424982 (Version 1)
Quarter: 2014Q3

REPORT INFORMATION
  Report Type: Spontaneous
  Country: US (occurrence: None)
  Receive Date: 20140725
  Receipt Date: 20140725
  Transmission Date: 20150326
  Serious: No
  Sender: FDA-Public Use
  Company Number: AP356-00586-SPO-US

PATIENT
  Age: 58 Year
  Sex: Female
  Weight: 109.3 kg

DRUGS (3)
  1. CYMBALTA [Concomitant]
     Active Substance: DULOXETINE HYDROCHLORIDE
  2. BELVIQ [Suspect]
     Active Substance: LORCASERIN HYDROCHLORIDE
     Indication: WEIGHT DECREASED
     Route: 048
     Dates: start: 20140218, end: 20140403
  3. ATIVAN [Concomitant]
     Active Substance: LORAZEPAM

REACTIONS (4)
  - Diverticulitis [None]
  - Musculoskeletal stiffness [None]
  - Pain [None]
  - Sinusitis [None]

NARRATIVE: CASE EVENT DATE: 201402
